FAERS Safety Report 4982881-6 (Version None)
Quarter: 2006Q2

REPORT INFORMATION
  Report Type: 
  Country: None (occurrence: None)
  Receive Date: 20060420
  Receipt Date: 20060408
  Transmission Date: 20061013
  Serious: Yes (Death, Hospitalization)
  Sender: FDA-Public Use
  Company Number: GXKR2006US02097

PATIENT
  Age: 56 Year
  Sex: Female

DRUGS (3)
  1. CITALOPRAM (NGX) (CITALOPRAM) [Suspect]
     Indication: DEPRESSION
     Dosage: 20 MG, QD
  2. LINEZOLID [Suspect]
     Indication: PYREXIA
     Dosage: 600 MG, Q12H, INTRAVENOUS
     Route: 042
  3. ANTIBIOTICS (NO INGREDIENTS/SUBSTANCES) [Concomitant]

REACTIONS (20)
  - ASTHENIA [None]
  - BLOOD CULTURE POSITIVE [None]
  - CARDIAC DISORDER [None]
  - CEREBRAL HAEMORRHAGE [None]
  - CONFUSIONAL STATE [None]
  - DISTURBANCE IN ATTENTION [None]
  - DRUG INTERACTION [None]
  - ENTEROCOCCAL INFECTION [None]
  - FATIGUE [None]
  - HYPERTENSION [None]
  - LEUKOPENIA [None]
  - LUNG INFILTRATION [None]
  - ORTHOSTATIC HYPOTENSION [None]
  - PALPITATIONS [None]
  - POST PROCEDURAL COMPLICATION [None]
  - PYREXIA [None]
  - RESPIRATORY FAILURE [None]
  - SEROTONIN SYNDROME [None]
  - THROMBOCYTOPENIA [None]
  - TREMOR [None]
